FAERS Safety Report 23626345 (Version 1)
Quarter: 2024Q1

REPORT INFORMATION
  Report Type: Spontaneous
  Country: US (occurrence: US)
  Receive Date: 20240313
  Receipt Date: 20240313
  Transmission Date: 20240409
  Serious: Yes (Death, Other)
  Sender: FDA-Public Use
  Company Number: US-BIOVITRUM-2024-US-003981

PATIENT
  Age: 68 Year
  Sex: Male

DRUGS (1)
  1. VONJO [Suspect]
     Active Substance: PACRITINIB
     Indication: Myeloproliferative neoplasm
     Dosage: 100 MG TWICE DAILY
     Route: 048

REACTIONS (2)
  - Death [Fatal]
  - Intentional product misuse [Recovered/Resolved]
